FAERS Safety Report 15523743 (Version 1)
Quarter: 2018Q4

REPORT INFORMATION
  Report Type: Report from Study
  Country: US (occurrence: US)
  Receive Date: 20181018
  Receipt Date: 20181018
  Transmission Date: 20190205
  Serious: Yes (Hospitalization, Other)
  Sender: FDA-Public Use
  Company Number: US-ROCHE-1984201

PATIENT
  Age: 74 Year
  Sex: Female

DRUGS (6)
  1. ATEZOLIZUMAB. [Suspect]
     Active Substance: ATEZOLIZUMAB
     Indication: SMALL CELL LUNG CANCER
     Dosage: ON DAY 1 OF EACH 21-DAY CYCLE ?DATE OF MOST RECENT DOSE (60MG/ML) OF ATEZOLIZUMAB PRIOR TO THE SAE:
     Route: 042
     Dates: start: 20170725
  2. CARBOPLATIN. [Suspect]
     Active Substance: CARBOPLATIN
     Indication: SMALL CELL LUNG CANCER
     Dosage: ON DAY 1 OF EACH 21-DAY CYCLE, DOSE AS PER GFR VALUE: 76.4, METHOD: OTHER AS PER PROTOCOL: CALVERT F
     Route: 042
     Dates: start: 20170725
  3. BLINDED TRILACICLIB [Suspect]
     Active Substance: TRILACICLIB
     Indication: SMALL CELL LUNG CANCER EXTENSIVE STAGE
     Dosage: ON DAYS 1, 2 AND 3 OF EACH 21-DAY ?DATE OF MOST RECENT DOSE OF TRILACICLIB PRIOR TO THE SAE: 27/JUL/
     Route: 042
     Dates: start: 20170725
  4. LASIX [Concomitant]
     Active Substance: FUROSEMIDE
     Indication: GENERALISED OEDEMA
     Route: 048
     Dates: start: 20170917
  5. IMODIUM [Concomitant]
     Active Substance: LOPERAMIDE HYDROCHLORIDE
     Indication: DIARRHOEA
     Route: 048
     Dates: start: 20170914
  6. ETOPOSIDE PHOSPHATE [Suspect]
     Active Substance: ETOPOSIDE PHOSPHATE
     Indication: SMALL CELL LUNG CANCER
     Dosage: 100 MG/ M2, DAILY ON DAYS 1, 2, AND 3 OF EACH 21-DAY CYCLE?DATE OF MOST RECENT DOSE OF ETOPOSIDE PHO
     Route: 042
     Dates: start: 20170725

REACTIONS (2)
  - Chronic obstructive pulmonary disease [Recovered/Resolved]
  - Cardiac failure congestive [Recovered/Resolved]

NARRATIVE: CASE EVENT DATE: 20170809
